FAERS Safety Report 6507037-7 (Version None)
Quarter: 2009Q4

REPORT INFORMATION
  Report Type: 
  Country: None (occurrence: None)
  Receive Date: 20091127
  Receipt Date: 20090417
  Transmission Date: 20100525
  Serious: Yes (Other)
  Sender: FDA-Public Use
  Company Number: US200904003900

PATIENT
  Sex: Male
  Weight: 117.9 kg

DRUGS (9)
  1. BYETTA [Suspect]
     Indication: TYPE 2 DIABETES MELLITUS
     Dosage: 5 UG,2/D, SUBCUTANEOUS; 10 UG,2/D), SUBCUTANEOUS; 5UG, SUBCUTANEOUS
     Route: 058
     Dates: start: 20080101, end: 20080101
  2. BYETTA [Suspect]
     Indication: TYPE 2 DIABETES MELLITUS
     Dosage: 5 UG,2/D, SUBCUTANEOUS; 10 UG,2/D), SUBCUTANEOUS; 5UG, SUBCUTANEOUS
     Route: 058
     Dates: start: 20080101, end: 20080101
  3. EXENATIDE5MCG PEN, DISPOSABLE DEVICE (EXENATIDE PEN (5MCG)) PEN,DISPOS [Concomitant]
  4. EXENATIDE 10MCG PEN, DISPOSABLE DEVICE (EXENATIDE PEN (10MCG))  PEN,DI [Concomitant]
  5. LEVEMIR [Concomitant]
  6. HUMALOG [Concomitant]
  7. FISH OIL (FISH OIL) TABLET [Concomitant]
  8. LIPITOR [Concomitant]
  9. TRICOR [Concomitant]

REACTIONS (2)
  - ABDOMINAL PAIN LOWER [None]
  - NAUSEA [None]
